FAERS Safety Report 22201458 (Version 1)
Quarter: 2023Q2

REPORT INFORMATION
  Report Type: Spontaneous
  Country: EG (occurrence: None)
  Receive Date: 20230412
  Receipt Date: 20230412
  Transmission Date: 20230722
  Serious: Yes (Other)
  Sender: FDA-Public Use
  Company Number: EG-Hikma Pharmaceuticals-EG-H14001-23-01099

PATIENT
  Age: 50 Year
  Sex: Female

DRUGS (1)
  1. PACLITAXEL [Suspect]
     Active Substance: PACLITAXEL
     Indication: Breast cancer
     Route: 041
     Dates: start: 20230114

REACTIONS (12)
  - Epistaxis [Unknown]
  - Paraesthesia [Unknown]
  - Bone pain [Unknown]
  - Lacrimation increased [Unknown]
  - Anaemia [Unknown]
  - Blood creatinine increased [Unknown]
  - Erythema [Unknown]
  - Pruritus [Unknown]
  - Headache [Unknown]
  - Stomatitis [Unknown]
  - Neutropenia [Unknown]
  - White blood cell count decreased [Unknown]

NARRATIVE: CASE EVENT DATE: 20230115
